FAERS Safety Report 5714069-5 (Version None)
Quarter: 2008Q2

REPORT INFORMATION
  Report Type: 
  Country: None (occurrence: None)
  Receive Date: 20080422
  Receipt Date: 20080422
  Transmission Date: 20081010
  Serious: Yes (Life-Threatening, Hospitalization)
  Sender: FDA-Public Use
  Company Number: None

PATIENT
  Age: 57 Year
  Sex: Female
  Weight: 68.0396 kg

DRUGS (2)
  1. SINGULAIR [Suspect]
     Indication: ASTHMA
     Dosage: 1 DAILY
     Dates: start: 20050425, end: 20080421
  2. SINGULAIR [Suspect]
     Indication: MULTIPLE ALLERGIES
     Dosage: 1 DAILY
     Dates: start: 20050425, end: 20080421

REACTIONS (8)
  - ANXIETY [None]
  - ASTHENIA [None]
  - EATING DISORDER [None]
  - FEAR [None]
  - INSOMNIA [None]
  - NASAL CONGESTION [None]
  - SELF ESTEEM DECREASED [None]
  - WEIGHT DECREASED [None]
